FAERS Safety Report 9709030 (Version 1)
Quarter: 2013Q4

REPORT INFORMATION
  Report Type: Spontaneous
  Country: US (occurrence: US)
  Receive Date: 20131125
  Receipt Date: 20131125
  Transmission Date: 20140711
  Serious: Yes (Other)
  Sender: FDA-Public Use
  Company Number: PHHY2013US134057

PATIENT
  Sex: Male

DRUGS (10)
  1. BACLOFEN INTRATHECAL [Suspect]
     Dosage: UNK UKN, UNK
     Route: 037
  2. SIMVASTATIN [Suspect]
     Dosage: 10 MG, QD
     Route: 048
  3. LOSARTAN POTASSIUM [Suspect]
     Dosage: 25 MG, QD
     Route: 048
  4. CLONIDINE [Suspect]
     Dosage: UNK UKN, UNK
     Route: 037
  5. DILAUDID [Suspect]
     Indication: PAIN
     Dosage: UNK UKN, UNK
     Route: 037
  6. MORFIN//MORPHINE SULFATE [Suspect]
     Indication: PAIN
     Dosage: 30 MG, EVERY 12 HOURS
     Route: 048
  7. LYRICA [Suspect]
     Dosage: 100 MG, TID
     Route: 048
  8. ASPIRIN [Suspect]
     Dosage: 81 MG, QD
     Route: 048
  9. IPRATROPIUM BROMIDE [Suspect]
     Dosage: 2 GTT, TID
     Route: 045
  10. LEVEMIR [Concomitant]
     Dosage: 100 U/ML, AS DIRECTED

REACTIONS (8)
  - Hypoaesthesia [Unknown]
  - Arthralgia [Unknown]
  - Sleep disorder [Unknown]
  - Dyspnoea [Unknown]
  - Paraesthesia [Unknown]
  - Pain [Unknown]
  - Asthenia [Unknown]
  - No therapeutic response [Unknown]
